FAERS Safety Report 7776442-3 (Version None)
Quarter: 2011Q3

REPORT INFORMATION
  Report Type: 
  Country: None (occurrence: None)
  Receive Date: 20110926
  Receipt Date: 20110921
  Transmission Date: 20111222
  Serious: Yes (Other)
  Sender: FDA-Public Use
  Company Number: US-PFIZER INC-2011224950

PATIENT
  Sex: Male

DRUGS (2)
  1. NORVASC [Suspect]
     Indication: HEART TRANSPLANT
     Dosage: 1 MG/ML, 2X/DAY (ORAL SUSPENSION)
     Route: 048
     Dates: start: 20040401
  2. CYCLOSPORINE [Concomitant]
     Dosage: UNK

REACTIONS (6)
  - RENAL IMPAIRMENT [None]
  - BLOOD URIC ACID INCREASED [None]
  - NEUROBLASTOMA [None]
  - OEDEMA PERIPHERAL [None]
  - ABASIA [None]
  - BLOOD CREATININE INCREASED [None]
